FAERS Safety Report 25697469 (Version 1)
Quarter: 2025Q3

REPORT INFORMATION
  Report Type: Spontaneous
  Country: US (occurrence: US)
  Receive Date: 20250818
  Receipt Date: 20250818
  Transmission Date: 20251021
  Serious: Yes (Other)
  Sender: NOVO NORDISK
  Company Number: US-NOVOPROD-1499235

PATIENT
  Age: 57 Year
  Sex: Female

DRUGS (3)
  1. NOVOLOG [Suspect]
     Active Substance: INSULIN ASPART
     Indication: Product used for unknown indication
     Route: 058
  2. NOVOLOG [Suspect]
     Active Substance: INSULIN ASPART
  3. NOVOLOG [Suspect]
     Active Substance: INSULIN ASPART

REACTIONS (12)
  - Cataract [Unknown]
  - Limb immobilisation [Unknown]
  - Carpal tunnel syndrome [Unknown]
  - Fall [Unknown]
  - Head injury [Unknown]
  - Nasal injury [Unknown]
  - Mouth injury [Unknown]
  - Joint injury [Unknown]
  - Corrective lens user [Unknown]
  - Ill-defined disorder [Unknown]
  - Pain in extremity [Unknown]
  - Injection site bruising [Not Recovered/Not Resolved]

NARRATIVE: CASE EVENT DATE: 20250401
